FAERS Safety Report 7746496-9 (Version None)
Quarter: 2011Q3

REPORT INFORMATION
  Report Type: 
  Country: None (occurrence: None)
  Receive Date: 20110912
  Receipt Date: 20110912
  Transmission Date: 20111222
  Serious: Yes (Other)
  Sender: FDA-Public Use
  Company Number: None

PATIENT
  Age: 62 Year
  Sex: Male

DRUGS (2)
  1. SIMVASTATIN [Suspect]
     Indication: LIPIDS ABNORMAL
     Dosage: 20MG ONE DAILY PO
     Route: 048
     Dates: start: 20101201, end: 20110601
  2. LOVAZA [Suspect]
     Indication: LIPIDS ABNORMAL
     Dosage: 2 GRAMS TWICE DAILY PO
     Route: 048
     Dates: start: 20100901, end: 20110601

REACTIONS (2)
  - FATIGUE [None]
  - DEPRESSION [None]
